FAERS Safety Report 18507611 (Version 2)
Quarter: 2020Q4

REPORT INFORMATION
  Report Type: Report from Study
  Country: DE (occurrence: DE)
  Receive Date: 20201116
  Receipt Date: 20201120
  Transmission Date: 20210114
  Serious: Yes (Death, Hospitalization, Other)
  Sender: FDA-Public Use
  Company Number: DE-BRISTOL-MYERS SQUIBB COMPANY-BMS-2020-072600

PATIENT
  Age: 78 Year
  Sex: Female
  Weight: 80 kg

DRUGS (1)
  1. NIVOLUMAB [Suspect]
     Active Substance: NIVOLUMAB
     Indication: TRANSITIONAL CELL CARCINOMA
     Dosage: 240 MILLIGRAM, Q2WK
     Route: 065
     Dates: start: 20180418

REACTIONS (2)
  - Thrombocytopenia [Not Recovered/Not Resolved]
  - Myelodysplastic syndrome [Fatal]

NARRATIVE: CASE EVENT DATE: 20200903
